FAERS Safety Report 19702043 (Version 2)
Quarter: 2021Q3

REPORT INFORMATION
  Report Type: Other
  Country: CA (occurrence: CA)
  Receive Date: 20210814
  Receipt Date: 20210913
  Transmission Date: 20211014
  Serious: Yes (Hospitalization, Other)
  Sender: FDA-Public Use
  Company Number: CA-GLENMARK PHARMACEUTICALS-2021GMK067226

PATIENT

DRUGS (61)
  1. CELECOXIB. [Suspect]
     Active Substance: CELECOXIB
     Indication: PAIN MANAGEMENT
     Dosage: UNK
     Route: 065
  2. DIPHENHYDRAMINE. [Suspect]
     Active Substance: DIPHENHYDRAMINE
     Indication: PRURITUS
     Dosage: 50 MILLIGRAM, OD (1 EVERY 1 DAYS)
     Route: 048
  3. DULCOLAX [SODIUM PICOSULFATE] [Suspect]
     Active Substance: SODIUM PICOSULFATE
     Indication: PRODUCT USED FOR UNKNOWN INDICATION
     Dosage: 5 MILLIGRAM, OD,1 EVERY 1 DAYS
     Route: 048
  4. FLUTICASONE PROPIONATE. [Suspect]
     Active Substance: FLUTICASONE PROPIONATE
     Indication: PRODUCT USED FOR UNKNOWN INDICATION
     Dosage: 250 DOSAGE FORM, OD (1 EVERY 1 DAYS)
     Route: 065
  5. LORAZEPAM. [Suspect]
     Active Substance: LORAZEPAM
     Indication: BACK PAIN
     Dosage: 2 MILLIGRAM, OD (1 EVERY 1 DAYS)
     Route: 060
  6. MONTELUKAST [Suspect]
     Active Substance: MONTELUKAST SODIUM
     Indication: PRODUCT USED FOR UNKNOWN INDICATION
     Dosage: 10 MILLIGRAM, OD (1 EVERY 1 DAYS)
     Route: 048
  7. CLONIDINE. [Suspect]
     Active Substance: CLONIDINE
     Dosage: 0.1 MILLIGRAM, OD (1 EVERY 1 DAYS)
     Route: 048
  8. LEUPROLIDE ACETATE. [Suspect]
     Active Substance: LEUPROLIDE ACETATE
     Indication: PRODUCT USED FOR UNKNOWN INDICATION
     Dosage: 0.25 MILLIGRAM, OD (1 EVERY 1 DAYS)
     Route: 030
  9. DIMENHYDRINATE. [Suspect]
     Active Substance: DIMENHYDRINATE
     Indication: CONSTIPATION
     Dosage: 20 MILLIGRAM, OD (1 EVERY 1 DAYS)
     Route: 048
  10. DIPHENHYDRAMINE. [Suspect]
     Active Substance: DIPHENHYDRAMINE
     Dosage: 12.5 MILLIGRAM, QID (1 EVERY 6 HOURS)
     Route: 048
  11. DOCOSAHEXAENOIC ACID [Suspect]
     Active Substance: DOCONEXENT
     Indication: PRODUCT USED FOR UNKNOWN INDICATION
     Dosage: UNK
     Route: 065
  12. MACROGOL 3350 [Suspect]
     Active Substance: POLYETHYLENE GLYCOL 3350
     Indication: PRODUCT USED FOR UNKNOWN INDICATION
     Dosage: 60 MILLIGRAM, OD (1 EVERY 1 DAYS)
     Route: 048
  13. MELATONIN [Suspect]
     Active Substance: MELATONIN
     Indication: SLEEP DEFICIT
  14. MELATONIN [Suspect]
     Active Substance: MELATONIN
     Indication: SLEEP DISORDER
     Dosage: UNK
     Route: 065
  15. FLUOXETINE HYDROCHLORIDE. [Suspect]
     Active Substance: FLUOXETINE HYDROCHLORIDE
     Indication: PRODUCT USED FOR UNKNOWN INDICATION
     Dosage: 20 MILLIGRAM, OD (1 EVERY 1 DAYS)
     Route: 048
  16. METHOCARBAMOL. [Suspect]
     Active Substance: METHOCARBAMOL
     Indication: PRODUCT USED FOR UNKNOWN INDICATION
     Dosage: UNK
     Route: 065
  17. ARIPIPRAZOLE. [Suspect]
     Active Substance: ARIPIPRAZOLE
     Indication: PRODUCT USED FOR UNKNOWN INDICATION
     Dosage: 2 MILLIGRAM, TID (1 EVERY 8 HOURS)
     Route: 048
  18. CELECOXIB. [Suspect]
     Active Substance: CELECOXIB
     Indication: PAIN MANAGEMENT
     Dosage: 100 MILLIGRAM, BID (1 EVERY 12 HOURS)
     Route: 048
  19. CELECOXIB. [Suspect]
     Active Substance: CELECOXIB
     Indication: BACK PAIN
  20. DIMENHYDRINATE. [Suspect]
     Active Substance: DIMENHYDRINATE
     Dosage: 25 MILLIGRAM, OD (1 EVERY 1 DAYS)
     Route: 048
  21. LORAZEPAM. [Suspect]
     Active Substance: LORAZEPAM
     Indication: PAIN MANAGEMENT
     Dosage: UNK
     Route: 065
  22. OMEGA?3 FISH OIL [Suspect]
     Active Substance: FISH OIL\OMEGA-3 FATTY ACIDS
     Indication: PRODUCT USED FOR UNKNOWN INDICATION
     Dosage: 1 DOSAGE FORM, OD, 1 EVERY 1 DAYS
     Route: 048
  23. PANTOPRAZOLE [Suspect]
     Active Substance: PANTOPRAZOLE
     Indication: PRODUCT USED FOR UNKNOWN INDICATION
     Dosage: 40 MILLIGRAM, OD (1 EVERY 1 DAYS)
     Route: 048
  24. HYDROMORPHONE [Suspect]
     Active Substance: HYDROMORPHONE
     Indication: BACK PAIN
     Dosage: UNK
     Route: 065
  25. KETOROLAC [Suspect]
     Active Substance: KETOROLAC TROMETHAMINE
     Indication: PAIN
     Dosage: 80 MILLIGRAM, OD (1 EVERY 1 DAYS)
     Route: 048
  26. PHENOBARBITAL. [Suspect]
     Active Substance: PHENOBARBITAL
     Dosage: 300 MILLIGRAM, BID (1 EVERY 12 HOURS)
     Route: 048
  27. SALBUTAMOL [Suspect]
     Active Substance: ALBUTEROL
     Dosage: 100 MILLIGRAM QID (1 EVERY 4 HOURS)
     Route: 065
  28. RANITIDINE HYDROCHLORIDE. [Suspect]
     Active Substance: RANITIDINE HYDROCHLORIDE
     Indication: PRODUCT USED FOR UNKNOWN INDICATION
     Dosage: 150 MILLIGRAM, OD (1 EVERY 1 DAYS)
     Route: 048
  29. VITAMIN D3 [Suspect]
     Active Substance: CHOLECALCIFEROL
     Indication: PRODUCT USED FOR UNKNOWN INDICATION
     Dosage: 200 INTERNATIONAL UNIT, OD (1 EVERY 1 DAYS)
     Route: 048
  30. GABAPENTIN. [Suspect]
     Active Substance: GABAPENTIN
     Dosage: 600 MILLIGRAM, TID (1 EVERY 8 HOURS)
     Route: 048
  31. BACLOFEN. [Suspect]
     Active Substance: BACLOFEN
     Indication: PRODUCT USED FOR UNKNOWN INDICATION
     Dosage: 20 MILLIGRAM, TID (1 EVERY 8 HOURS)
     Route: 048
  32. METHADONE [Suspect]
     Active Substance: METHADONE HYDROCHLORIDE
     Indication: PRODUCT USED FOR UNKNOWN INDICATION
     Dosage: 0.375 MILLIGRAM, OD (1 EVERY 1 DAYS)
     Route: 048
  33. ROBAXACET [Suspect]
     Active Substance: ACETAMINOPHEN\METHOCARBAMOL
     Indication: BACK PAIN
     Dosage: 900 MILLIGRAM, OD (1 EVERY 1 DAYS)
     Route: 048
  34. PANTOPRAZOLE SODIUM ANHYDROUS [Suspect]
     Active Substance: PANTOPRAZOLE SODIUM ANHYDROUS
     Indication: PRODUCT USED FOR UNKNOWN INDICATION
     Dosage: 40 MILLIGRAM, OD (1 EVERY 1 DAYS)
     Route: 048
  35. CLOBAZAM. [Suspect]
     Active Substance: CLOBAZAM
     Indication: PRODUCT USED FOR UNKNOWN INDICATION
     Dosage: 40 MILLIGRAM, OD (1 EVERY 1 DAYS)
     Route: 048
  36. HYDROXYCHLOROQUINE SULFATE. [Suspect]
     Active Substance: HYDROXYCHLOROQUINE SULFATE
     Indication: PRODUCT USED FOR UNKNOWN INDICATION
     Dosage: 400 MILLIGRAM, OD (1 EVERY 1 DAYS)
     Route: 048
  37. LEUPRORELIN [Suspect]
     Active Substance: LEUPROLIDE ACETATE
     Indication: PRODUCT USED FOR UNKNOWN INDICATION
     Dosage: 7.5 MILLIGRAM, OD (1 EVERY 1 DAYS)
     Route: 030
  38. MACROGOL 3350 [Suspect]
     Active Substance: POLYETHYLENE GLYCOL 3350
     Dosage: 30 MILLIGRAM, BID (1 EVERY 12 HOURS)
     Route: 048
  39. SALBUTAMOL [Suspect]
     Active Substance: ALBUTEROL
     Indication: PRODUCT USED FOR UNKNOWN INDICATION
     Dosage: 600 MICROGRAM, OD (1 EVERY 1 DAYS)
     Route: 065
  40. CLONIDINE. [Suspect]
     Active Substance: CLONIDINE
     Indication: PRODUCT USED FOR UNKNOWN INDICATION
     Dosage: 0.05 MILLIGRAM, OD (1 EVERY 1 DAYS)
     Route: 048
  41. FLUOXETINE [Suspect]
     Active Substance: FLUOXETINE HYDROCHLORIDE
     Indication: PRODUCT USED FOR UNKNOWN INDICATION
     Dosage: 20 MILLIGRAM, OD (1 EVERY 1 DAYS)
     Route: 048
  42. LEUPRORELIN [Suspect]
     Active Substance: LEUPROLIDE ACETATE
     Dosage: 0.25 MILLIGRAM. OD (1 EVERY 1 DAYS)
     Route: 030
  43. LORAZEPAM. [Suspect]
     Active Substance: LORAZEPAM
     Indication: SEIZURE
     Dosage: 0.5 MILLIGRAM, OD
     Route: 060
  44. LORAZEPAM. [Suspect]
     Active Substance: LORAZEPAM
     Indication: MUSCLE SPASMS
     Dosage: UNK
     Route: 065
  45. PHENOBARBITAL. [Suspect]
     Active Substance: PHENOBARBITAL
     Indication: PRODUCT USED FOR UNKNOWN INDICATION
     Dosage: 60 MILLIGRAM, OD (1 EVERY 1 DAYS)
     Route: 048
  46. ROBAXACET [Suspect]
     Active Substance: ACETAMINOPHEN\METHOCARBAMOL
     Dosage: UNK, BID (1 EVERY 12 HOURS)
     Route: 048
  47. VITAMIN D3 [Suspect]
     Active Substance: CHOLECALCIFEROL
     Indication: PRODUCT USED FOR UNKNOWN INDICATION
     Dosage: UNK
     Route: 048
  48. METHOCARBAMOL. [Suspect]
     Active Substance: METHOCARBAMOL
     Dosage: UNK, BID (1 EVERY 12 HOURS)
     Route: 048
  49. GABAPENTIN. [Suspect]
     Active Substance: GABAPENTIN
     Indication: BACK PAIN
     Dosage: 1800 MILLIGRAM, OD (1 EVERY 1 DAYS)
     Route: 048
  50. GABAPENTIN. [Suspect]
     Active Substance: GABAPENTIN
     Indication: PAIN MANAGEMENT
     Dosage: 300 MILLIGRAM, TID (1 EVERY 8 HOURS)
     Route: 048
  51. CELECOXIB. [Suspect]
     Active Substance: CELECOXIB
     Indication: BACK PAIN
     Dosage: 200 MILLIGRAM, OD (1 EVERY 1 DAYS)
     Route: 048
  52. CLOBAZAM. [Suspect]
     Active Substance: CLOBAZAM
     Dosage: 20 MILLIGRAM, BID (1 EVERY 12 HOURS)
     Route: 048
  53. HYDROMORPHONE [Suspect]
     Active Substance: HYDROMORPHONE
     Indication: PAIN MANAGEMENT
     Dosage: UNK
     Route: 065
  54. MELATONIN [Suspect]
     Active Substance: MELATONIN
     Indication: SLEEP DISORDER
     Dosage: 10 MILLIGRAM, OD (1 EVERY 1 DAYS)
     Route: 048
  55. MELATONIN [Suspect]
     Active Substance: MELATONIN
     Indication: SLEEP DEFICIT
  56. METHADONE [Suspect]
     Active Substance: METHADONE HYDROCHLORIDE
     Dosage: 2 MILLIGRAM, TID (1 EVERY 8 HOURS)
     Route: 048
  57. RANITIDINE. [Suspect]
     Active Substance: RANITIDINE
     Indication: PRODUCT USED FOR UNKNOWN INDICATION
     Dosage: 150 MILLIGRAM, OD (1 EVERY 1 DAYS)
     Route: 048
  58. VITAMIN C [Suspect]
     Active Substance: ASCORBIC ACID
     Indication: PRODUCT USED FOR UNKNOWN INDICATION
     Dosage: 1 EVERY 1 DAY (1 EVERY 1 DAYS)
     Route: 048
  59. VITAMIN D3 [Suspect]
     Active Substance: CHOLECALCIFEROL
     Dosage: 200 INTERNATIONAL UNIT, OD
     Route: 048
  60. KETOROLAC TROMETHAMINE. [Suspect]
     Active Substance: KETOROLAC TROMETHAMINE
     Indication: PAIN
     Dosage: 20 MILLIGRAM, QID (1 EVERY 6 HOURS)
     Route: 048
  61. VITAMIN C [Suspect]
     Active Substance: ASCORBIC ACID
     Indication: PRODUCT USED FOR UNKNOWN INDICATION
     Dosage: 1500 MILLIGRAM, OD (1 EVERY 1 DAYS)
     Route: 048

REACTIONS (7)
  - Respiratory depression [Recovered/Resolved]
  - Drug abuse [Recovered/Resolved]
  - Child abuse [Recovered/Resolved]
  - Drug ineffective [Unknown]
  - Product use in unapproved indication [Unknown]
  - Drug dependence [Recovered/Resolved]
  - Product prescribing error [Unknown]
